FAERS Safety Report 20254911 (Version 1)
Quarter: 2021Q4

REPORT INFORMATION
  Report Type: Spontaneous
  Country: DE (occurrence: DE)
  Receive Date: 20211230
  Receipt Date: 20211230
  Transmission Date: 20220303
  Serious: Yes (Hospitalization)
  Sender: FDA-Public Use
  Company Number: DE-ADRED-07323-01

PATIENT
  Age: 65 Year
  Sex: Female
  Weight: 115 kg

DRUGS (3)
  1. MYCOPHENOLATE MOFETIL [Suspect]
     Active Substance: MYCOPHENOLATE MOFETIL
     Dosage: UNKNOWN, MYCOPHENOLSAEURE
  2. METHYLPREDNISOLONE [Suspect]
     Active Substance: METHYLPREDNISOLONE
     Dosage: UNKNOWN
     Route: 048
  3. pyridostigmin [Concomitant]
     Dosage: UNKNOWN
     Route: 048

REACTIONS (4)
  - Dyspnoea [Unknown]
  - Pain [Unknown]
  - Hypotonia [Unknown]
  - Chills [Unknown]
